FAERS Safety Report 23613486 (Version 1)
Quarter: 2024Q1

REPORT INFORMATION
  Report Type: Report from Study
  Country: US (occurrence: US)
  Receive Date: 20240308
  Receipt Date: 20240308
  Transmission Date: 20240409
  Serious: Yes (Other)
  Sender: FDA-Public Use
  Company Number: US-JAZZ PHARMACEUTICALS-2023-US-020698

PATIENT
  Age: 28 Year
  Sex: Female

DRUGS (4)
  1. XYWAV [Suspect]
     Active Substance: CALCIUM OXYBATE\MAGNESIUM OXYBATE\POTASSIUM OXYBATE\SODIUM OXYBATE
     Indication: Narcolepsy
     Dosage: 2.25 GRAM, BID (TWICE NIGHTLY)
     Dates: start: 20231005
  2. XYWAV [Suspect]
     Active Substance: CALCIUM OXYBATE\MAGNESIUM OXYBATE\POTASSIUM OXYBATE\SODIUM OXYBATE
     Indication: Cataplexy
     Dosage: 3.75 GRAM, BID (3.75G AT BEDTIME AND 3.75G 2.5 TO 4 HOURS LATER)
  3. XYWAV [Suspect]
     Active Substance: CALCIUM OXYBATE\MAGNESIUM OXYBATE\POTASSIUM OXYBATE\SODIUM OXYBATE
     Indication: Somnolence
     Dosage: UNK
  4. XYWAV [Suspect]
     Active Substance: CALCIUM OXYBATE\MAGNESIUM OXYBATE\POTASSIUM OXYBATE\SODIUM OXYBATE
     Dosage: UNK

REACTIONS (17)
  - Pneumonia [Unknown]
  - Thirst [Unknown]
  - Withdrawal syndrome [Unknown]
  - COVID-19 [Unknown]
  - Influenza [Unknown]
  - Restless legs syndrome [Unknown]
  - Magnesium deficiency [Unknown]
  - Streptococcal infection [Unknown]
  - Feeling drunk [Unknown]
  - Enuresis [Recovered/Resolved]
  - Muscle spasms [Recovered/Resolved]
  - Dizziness [Unknown]
  - Urinary incontinence [Unknown]
  - Urinary tract infection [Unknown]
  - Product preparation error [Unknown]
  - Product administration interrupted [Unknown]
  - Intentional dose omission [Unknown]

NARRATIVE: CASE EVENT DATE: 20240101
